FAERS Safety Report 7780903-0 (Version None)
Quarter: 2011Q3

REPORT INFORMATION
  Report Type: 
  Country: None (occurrence: None)
  Receive Date: 20110927
  Receipt Date: 20110921
  Transmission Date: 20111222
  Serious: Yes (Hospitalization)
  Sender: FDA-Public Use
  Company Number: FR-ABBOTT-11P-056-0856711-00

PATIENT
  Sex: Female

DRUGS (5)
  1. SIBUTRAL [Suspect]
     Indication: PRODUCT USED FOR UNKNOWN INDICATION
     Route: 048
     Dates: start: 20020101, end: 20020501
  2. MEDIATOR [Suspect]
     Dates: start: 20020501, end: 20070701
  3. MEDIATOR [Suspect]
     Dates: start: 20090701, end: 20091201
  4. RIMONABANT [Concomitant]
     Indication: PRODUCT USED FOR UNKNOWN INDICATION
     Dates: start: 20070701, end: 20090701
  5. MEDIATOR [Suspect]
     Indication: OVERWEIGHT
     Dates: start: 19960101, end: 20020101

REACTIONS (2)
  - MITRAL VALVE INCOMPETENCE [None]
  - AORTIC VALVE INCOMPETENCE [None]
